FAERS Safety Report 19304737 (Version 3)
Quarter: 2021Q2

REPORT INFORMATION
  Report Type: Spontaneous
  Country: GB (occurrence: GB)
  Receive Date: 20210526
  Receipt Date: 20210621
  Transmission Date: 20210717
  Serious: Yes (Hospitalization, Other)
  Sender: FDA-Public Use
  Company Number: GB-CIPLA (EU) LIMITED-2021GB03731

PATIENT

DRUGS (3)
  1. CETIRIZINE [Suspect]
     Active Substance: CETIRIZINE HYDROCHLORIDE
     Indication: MILIARIA
     Dosage: 1 DOSAGE FORM, QD (1 TABLET IN THE MORNING), FILM COATED TABLET
     Route: 048
     Dates: start: 20210501, end: 20210501
  2. LORATADINE. [Suspect]
     Active Substance: LORATADINE
     Indication: MILIARIA
     Dosage: 1 TABLET
     Route: 048
     Dates: start: 20210506, end: 20210506
  3. PIRITON [Suspect]
     Active Substance: CHLORPHENIRAMINE MALEATE
     Indication: MILIARIA
     Dosage: 10 MILLILITER, QID
     Route: 048
     Dates: start: 20210501, end: 20210504

REACTIONS (5)
  - Seizure [Recovering/Resolving]
  - Swelling face [Recovered/Resolved with Sequelae]
  - Dry mouth [Recovered/Resolved]
  - Heart rate irregular [Recovering/Resolving]
  - Fatigue [Recovering/Resolving]

NARRATIVE: CASE EVENT DATE: 20210505
